FAERS Safety Report 17682684 (Version 5)
Quarter: 2020Q3

REPORT INFORMATION
  Report Type: Report from Study
  Country: US (occurrence: US)
  Receive Date: 20200419
  Receipt Date: 20200924
  Transmission Date: 20201102
  Serious: Yes (Hospitalization)
  Sender: FDA-Public Use
  Company Number: US-AGIOS-2004US01842

PATIENT

DRUGS (2)
  1. TIBSOVO [Suspect]
     Active Substance: IVOSIDENIB
     Indication: ACUTE MYELOID LEUKAEMIA
     Dosage: 250 MILLIGRAM, 1 TABLET, QD
     Route: 048
     Dates: start: 20180820
  2. TIBSOVO [Suspect]
     Active Substance: IVOSIDENIB
     Dosage: 250 MILLIGRAM, 1 TABLET, QD
     Route: 048
     Dates: start: 20180820

REACTIONS (7)
  - Fall [Unknown]
  - Product dose omission issue [Unknown]
  - Cystitis [Unknown]
  - Confusional state [Unknown]
  - Illness [Unknown]
  - Wrong product administered [Unknown]
  - Off label use [Not Recovered/Not Resolved]

NARRATIVE: CASE EVENT DATE: 20180820
